FAERS Safety Report 23217214 (Version 1)
Quarter: 2023Q4

REPORT INFORMATION
  Report Type: Spontaneous
  Country: CN (occurrence: CN)
  Receive Date: 20231122
  Receipt Date: 20231122
  Transmission Date: 20240109
  Serious: Yes (Other)
  Sender: FDA-Public Use
  Company Number: CN-BAYER-2023A161933

PATIENT
  Age: 83 Year
  Sex: Male
  Weight: 51.4 kg

DRUGS (6)
  1. STIVARGA [Suspect]
     Active Substance: REGORAFENIB
     Indication: Hepatic cancer
     Dosage: 80 MG, QD
     Route: 048
     Dates: start: 20230519, end: 20231017
  2. CAMRELIZUMAB [Concomitant]
     Active Substance: CAMRELIZUMAB
     Indication: Hepatic cancer
     Dosage: 200 MG, ONCE, DISSOLVE IN SODIUM CHLORIDE INJECTION 100ML
     Route: 041
     Dates: start: 20230519, end: 20230519
  3. CAMRELIZUMAB [Concomitant]
     Active Substance: CAMRELIZUMAB
     Indication: Hepatic cancer
     Dosage: 200 MG, ONCE, DISSOLVE IN SODIUM CHLORIDE INJECTION 100ML
     Route: 041
     Dates: start: 20230628, end: 20230628
  4. CAMRELIZUMAB [Concomitant]
     Active Substance: CAMRELIZUMAB
     Indication: Hepatic cancer
     Dosage: 200 MG, ONCE, DISSOLVE IN SODIUM CHLORIDE INJECTION 100ML
     Route: 041
     Dates: start: 20230719, end: 20230719
  5. CAMRELIZUMAB [Concomitant]
     Active Substance: CAMRELIZUMAB
     Indication: Hepatic cancer
     Dosage: 200 MG, ONCE, DISSOLVE IN SODIUM CHLORIDE INJECTION 100ML
     Route: 041
     Dates: start: 20230809, end: 20230809
  6. CAMRELIZUMAB [Concomitant]
     Active Substance: CAMRELIZUMAB
     Indication: Hepatic cancer
     Dosage: 200 MG, ONCE, DISSOLVE IN SODIUM CHLORIDE INJECTION 100ML
     Route: 041
     Dates: start: 20230830, end: 20230830

REACTIONS (2)
  - Coagulopathy [Recovering/Resolving]
  - Off label use [None]

NARRATIVE: CASE EVENT DATE: 20230519
